FAERS Safety Report 4497000-2 (Version None)
Quarter: 2004Q4

REPORT INFORMATION
  Report Type: 
  Country: None (occurrence: None)
  Receive Date: 20040928
  Receipt Date: 20040727
  Transmission Date: 20050328
  Serious: No
  Sender: FDA-Public Use
  Company Number: 04P-163-0268174-00

PATIENT
  Age: 77 Year
  Sex: Female
  Weight: 54.4316 kg

DRUGS (12)
  1. HUMIRA [Suspect]
     Indication: RHEUMATOID ARTHRITIS
     Dosage: 40 MG, 1 IN 2 WK, SUBCUTANEOUS
     Route: 058
     Dates: start: 20030901
  2. PREDNISONE [Concomitant]
  3. RABEPRAZOLE SOIDUM [Concomitant]
  4. LISINOPRIL [Concomitant]
  5. BISPROLOL [Concomitant]
  6. FERROUS SULFATE TAB [Concomitant]
  7. ASCORBIC ACID [Concomitant]
  8. FOLIC ACID [Concomitant]
  9. ROFECOXIB [Concomitant]
  10. HYDROXYCHLOROQUINE PHOSPHATE [Concomitant]
  11. FLUVASTATIN SODIUM [Concomitant]
  12. GLUCOSAMINE [Concomitant]

REACTIONS (1)
  - VERTIGO [None]
